FAERS Safety Report 15128959 (Version 1)
Quarter: 2018Q3

REPORT INFORMATION
  Report Type: Spontaneous
  Country: DE (occurrence: DE)
  Receive Date: 20180711
  Receipt Date: 20180711
  Transmission Date: 20181010
  Serious: Yes (Other)
  Sender: FDA-Public Use
  Company Number: DE-TORRENT-00008792

PATIENT
  Sex: Male

DRUGS (1)
  1. OLANZAPINE. [Suspect]
     Active Substance: OLANZAPINE
     Indication: PSYCHOTIC DISORDER
     Dosage: UNKNOWN
     Route: 065
     Dates: start: 2004

REACTIONS (7)
  - Weight increased [Not Recovered/Not Resolved]
  - Food craving [Not Recovered/Not Resolved]
  - Hypertension [Not Recovered/Not Resolved]
  - Diabetes mellitus [Not Recovered/Not Resolved]
  - Obesity [Not Recovered/Not Resolved]
  - Depressed mood [Not Recovered/Not Resolved]
  - Hunger [Not Recovered/Not Resolved]
